FAERS Safety Report 18752076 (Version 3)
Quarter: 2022Q4

REPORT INFORMATION
  Report Type: Report from Study
  Country: JP (occurrence: JP)
  Receive Date: 20210118
  Receipt Date: 20221027
  Transmission Date: 20230112
  Serious: Yes (Hospitalization, Other)
  Sender: FDA-Public Use
  Company Number: JP-RECORDATI RARE DISEASES INC.-JP-R13005-19-00258

PATIENT
  Age: 0 Year
  Sex: Male
  Weight: .73 kg

DRUGS (23)
  1. NEOPROFEN [Suspect]
     Active Substance: IBUPROFEN LYSINE
     Indication: Patent ductus arteriosus
     Dosage: 8 MILLIGRAM, QD
     Route: 042
     Dates: start: 20190831, end: 20190831
  2. NEOPROFEN [Suspect]
     Active Substance: IBUPROFEN LYSINE
     Dosage: 4 MILLIGRAM
     Route: 042
     Dates: start: 20190901, end: 20190901
  3. NEOPROFEN [Suspect]
     Active Substance: IBUPROFEN LYSINE
     Dosage: 4 MILLIGRAM
     Route: 042
     Dates: start: 20190903, end: 20190903
  4. NEOPROFEN [Suspect]
     Active Substance: IBUPROFEN LYSINE
     Dosage: 8 MILLIGRAM, QD
     Route: 042
     Dates: start: 20190905, end: 20190905
  5. NEOPROFEN [Suspect]
     Active Substance: IBUPROFEN LYSINE
     Dosage: 4 MILLIGRAM
     Route: 042
     Dates: start: 20190906, end: 20190906
  6. NEOPROFEN [Suspect]
     Active Substance: IBUPROFEN LYSINE
     Dosage: 4 MILLIGRAM, QD
     Route: 042
     Dates: start: 20190907, end: 20190907
  7. DEXTROSE [Concomitant]
     Active Substance: DEXTROSE
     Indication: Nutritional supplementation
     Route: 042
     Dates: start: 20190830, end: 20190902
  8. CALCIUM GLUCONATE [Concomitant]
     Active Substance: CALCIUM GLUCONATE
     Indication: Mineral supplementation
     Route: 042
     Dates: start: 20190830, end: 20190912
  9. PLEAMIN-P [Concomitant]
     Indication: Nutritional supplementation
     Route: 042
     Dates: start: 20190831, end: 20190912
  10. FENTANYL [Concomitant]
     Active Substance: FENTANYL
     Indication: Sedation
     Route: 042
     Dates: start: 20190831, end: 20190906
  11. SOLU-CORTEF [Concomitant]
     Active Substance: HYDROCORTISONE SODIUM SUCCINATE
     Indication: Hypotension
     Route: 042
     Dates: start: 20190831, end: 20190831
  12. MENATETRENONE [Concomitant]
     Active Substance: MENATETRENONE
     Indication: Vitamin supplementation
     Route: 042
     Dates: start: 20190831, end: 20190903
  13. AMPICILLIN [Concomitant]
     Active Substance: AMPICILLIN
     Indication: Infection prophylaxis
     Route: 065
     Dates: start: 20190831, end: 20190903
  14. GENTAMICIN SULFATE [Concomitant]
     Active Substance: GENTAMICIN SULFATE
     Indication: Infection prophylaxis
     Route: 042
     Dates: start: 20190831, end: 20190831
  15. LASIX [Concomitant]
     Active Substance: FUROSEMIDE
     Indication: Cardiac failure
     Route: 042
     Dates: start: 20190831, end: 20190902
  16. SOYBEAN OIL [Concomitant]
     Active Substance: SOYBEAN OIL
     Indication: Nutritional supplementation
     Route: 042
     Dates: start: 20190901, end: 20190910
  17. MILRINONE [Concomitant]
     Active Substance: MILRINONE
     Indication: Cardiac failure
     Route: 042
     Dates: start: 20190901, end: 20190904
  18. HUMULIN R [Concomitant]
     Active Substance: INSULIN HUMAN
     Indication: Hyperkalaemia
     Route: 065
     Dates: start: 20190901, end: 20190901
  19. MEYLON [Concomitant]
     Active Substance: SODIUM BICARBONATE
     Indication: Metabolic acidosis
     Route: 042
     Dates: start: 20190901, end: 20190906
  20. PHENOBARBITAL SODIUM [Concomitant]
     Active Substance: PHENOBARBITAL SODIUM
     Indication: Sedation
     Route: 042
     Dates: start: 20190901, end: 20190905
  21. ELECTROLYTES NOS [Concomitant]
     Active Substance: ELECTROLYTES NOS
     Indication: Fluid replacement
     Route: 042
     Dates: start: 20190902, end: 20190912
  22. SODIUM PHOSPHATE HYDRATE [Concomitant]
     Indication: Mineral supplementation
     Route: 042
     Dates: start: 20190905, end: 20190917
  23. CAFFEINE [Concomitant]
     Active Substance: CAFFEINE
     Indication: Apnoeic attack
     Route: 042
     Dates: start: 20190907, end: 20190917

REACTIONS (5)
  - Posthaemorrhagic hydrocephalus [Recovering/Resolving]
  - Drug ineffective [Recovering/Resolving]
  - Intraventricular haemorrhage [Recovering/Resolving]
  - Blood creatinine increased [Recovered/Resolved]
  - Anaemia [Recovered/Resolved]

NARRATIVE: CASE EVENT DATE: 20190831
